FAERS Safety Report 4396908-6 (Version None)
Quarter: 2004Q3

REPORT INFORMATION
  Report Type: 
  Country: None (occurrence: None)
  Receive Date: 20040713
  Receipt Date: 20040713
  Transmission Date: 20050211
  Serious: No
  Sender: FDA-Public Use
  Company Number: None

PATIENT
  Age: 57 Year
  Sex: Female
  Weight: 65.7716 kg

DRUGS (1)
  1. ZICAM LIQUID NASAL GEL [Suspect]
     Dosage: USED 2 TIMES ON SAME DAY
     Dates: start: 20031215

REACTIONS (2)
  - DYSGEUSIA [None]
  - PAROSMIA [None]
